FAERS Safety Report 4984143-X (Version None)
Quarter: 2006Q2

REPORT INFORMATION
  Report Type: 
  Country: None (occurrence: None)
  Receive Date: 20060427
  Receipt Date: 20060116
  Transmission Date: 20061013
  Serious: Yes (Hospitalization, Other)
  Sender: FDA-Public Use
  Company Number: JP-BOEHRINGER INGELHEIM PHARMACEUTICALS, INC.-2006-BP-00997YA

PATIENT
  Sex: Male
  Weight: 67.25 kg

DRUGS (17)
  1. HARNAL [Suspect]
     Indication: BENIGN PROSTATIC HYPERPLASIA
     Route: 048
     Dates: start: 20050921, end: 20051012
  2. HARNAL [Suspect]
     Indication: DYSURIA
  3. TOLEDOMIN [Suspect]
     Indication: DEPRESSION
     Route: 048
     Dates: start: 20050926, end: 20051012
  4. LIMAS [Concomitant]
     Dates: start: 20050916, end: 20051012
  5. LANDSEN [Concomitant]
     Indication: IMPATIENCE
     Dates: start: 20050916
  6. LANDSEN [Concomitant]
     Indication: DEPRESSION
  7. FLUVOXAMINE MALEATE [Concomitant]
     Indication: DEPRESSION
     Dates: start: 20050916, end: 20050926
  8. GASMOTIN [Concomitant]
     Indication: ORTHOSTATIC HYPOTENSION
     Dates: start: 20050916, end: 20051017
  9. METLIGINE [Concomitant]
     Indication: MYOCARDIAL INFARCTION
     Dates: start: 20050916
  10. SIGMART [Concomitant]
     Indication: HEPATIC FUNCTION ABNORMAL
     Dates: start: 20050916, end: 20051017
  11. URSO [Concomitant]
     Dates: start: 20050916, end: 20051017
  12. BASEN [Concomitant]
     Indication: MYOCARDIAL INFARCTION
     Dates: start: 20050916, end: 20051017
  13. ASPIRIN [Concomitant]
     Indication: BENIGN PROSTATIC HYPERPLASIA
     Dates: start: 20050916, end: 20051017
  14. FLIVAS [Concomitant]
     Indication: INSOMNIA
     Dates: start: 20050919, end: 20050920
  15. LENDORMIN [Concomitant]
     Indication: DEPRESSION
     Dates: start: 20050916, end: 20051006
  16. MYSLEE [Concomitant]
     Indication: INSOMNIA
     Dates: start: 20051007, end: 20051011
  17. ETILEFRINE HYDROCHLORIDE [Concomitant]

REACTIONS (13)
  - ABNORMAL BEHAVIOUR [None]
  - AGITATION [None]
  - AMNESIA [None]
  - DELIRIUM [None]
  - FALL [None]
  - INCONTINENCE [None]
  - LABILE BLOOD PRESSURE [None]
  - ORTHOSTATIC HYPOTENSION [None]
  - PARALYSIS [None]
  - SUBDURAL HYGROMA [None]
  - SUICIDAL IDEATION [None]
  - SYNCOPE [None]
  - THINKING ABNORMAL [None]
